FAERS Safety Report 7054730-6 (Version None)
Quarter: 2010Q4

REPORT INFORMATION
  Report Type: 
  Country: None (occurrence: None)
  Receive Date: 20101020
  Receipt Date: 20101011
  Transmission Date: 20110411
  Serious: Yes (Disabling, Other)
  Sender: FDA-Public Use
  Company Number: GB-ABBOTT-10P-167-0638022-00

PATIENT
  Sex: Female

DRUGS (3)
  1. HUMIRA [Suspect]
     Indication: RHEUMATOID ARTHRITIS
     Route: 058
     Dates: start: 20100121, end: 20100310
  2. TRAMADOL HCL [Concomitant]
     Indication: PAIN
     Route: 048
  3. CITALOPRAM HYDROBROMIDE [Concomitant]
     Indication: DEPRESSION

REACTIONS (10)
  - ABASIA [None]
  - ADVERSE EVENT [None]
  - FATIGUE [None]
  - HEADACHE [None]
  - LOCALISED INFECTION [None]
  - MALAISE [None]
  - MUSCULOSKELETAL STIFFNESS [None]
  - MYALGIA [None]
  - PUSTULAR PSORIASIS [None]
  - VOMITING [None]
